FAERS Safety Report 10157947 (Version 2)
Quarter: 2014Q2

REPORT INFORMATION
  Report Type: Spontaneous
  Country: US (occurrence: US)
  Receive Date: 20140507
  Receipt Date: 20140610
  Transmission Date: 20141212
  Serious: Yes (Hospitalization)
  Sender: FDA-Public Use
  Company Number: US-GLAXOSMITHKLINE-A1071197A

PATIENT
  Age: 77 Year
  Sex: Female

DRUGS (2)
  1. ADVAIR [Suspect]
     Indication: CHRONIC OBSTRUCTIVE PULMONARY DISEASE
     Dosage: 1PUFF TWICE PER DAY
     Route: 055
  2. UNSPECIFIED MEDICATIONS [Concomitant]

REACTIONS (5)
  - Renal failure [Unknown]
  - Implantable defibrillator insertion [Unknown]
  - Bronchiectasis [Unknown]
  - Tremor [Unknown]
  - Product quality issue [Unknown]
